FAERS Safety Report 19869676 (Version 1)
Quarter: 2021Q3

REPORT INFORMATION
  Report Type: Spontaneous
  Country: US (occurrence: US)
  Receive Date: 20210923
  Receipt Date: 20210923
  Transmission Date: 20211014
  Serious: No
  Sender: FDA-Public Use
  Company Number: US-SA-2021SA309009

PATIENT
  Age: 42 Year
  Sex: Female

DRUGS (2)
  1. DUPIXENT [Suspect]
     Active Substance: DUPILUMAB
     Indication: CHRONIC RESPIRATORY DISEASE
     Dosage: 300 MG, QOW
     Route: 058
     Dates: start: 202107
  2. FASENRA [Concomitant]
     Active Substance: BENRALIZUMAB
     Indication: CHRONIC RESPIRATORY DISEASE
     Dosage: UNK

REACTIONS (3)
  - Dyspnoea [Unknown]
  - Product use in unapproved indication [Unknown]
  - Fatigue [Unknown]

NARRATIVE: CASE EVENT DATE: 202107
